FAERS Safety Report 6026386-2 (Version None)
Quarter: 2009Q1

REPORT INFORMATION
  Report Type: 
  Country: None (occurrence: None)
  Receive Date: 20090102
  Receipt Date: 20081224
  Transmission Date: 20090719
  Serious: Yes (Hospitalization)
  Sender: FDA-Public Use
  Company Number: PHHY2008TW32783

PATIENT
  Sex: Female
  Weight: 68 kg

DRUGS (4)
  1. ZOLEDRONATE T29581++BM [Suspect]
     Indication: BREAST CANCER
     Dosage: 4 MG, EVERY MONTH
     Route: 042
     Dates: start: 20080901
  2. ZOLEDRONATE T29581++BM [Suspect]
     Indication: METASTASES TO BONE
  3. BETHANECHOL [Concomitant]
     Indication: URINARY TRACT INFECTION
     Dosage: 15 MG DAILY
     Dates: start: 20081220
  4. CEFTIBUTEN [Concomitant]
     Indication: URINARY TRACT INFECTION
     Dosage: 200 MG/ DAY
     Dates: start: 20081221

REACTIONS (12)
  - ABDOMINAL PAIN LOWER [None]
  - ALANINE AMINOTRANSFERASE INCREASED [None]
  - ASPARTATE AMINOTRANSFERASE INCREASED [None]
  - BLOOD GLUCOSE INCREASED [None]
  - BLOOD POTASSIUM DECREASED [None]
  - C-REACTIVE PROTEIN INCREASED [None]
  - GASTROENTERITIS [None]
  - HEPATIC STEATOSIS [None]
  - NEUTROPHIL COUNT INCREASED [None]
  - RENAL DISORDER [None]
  - VOMITING [None]
  - WHITE BLOOD CELL COUNT INCREASED [None]
